FAERS Safety Report 8685794 (Version 2)
Quarter: 2012Q4

REPORT INFORMATION
  Report Type: 
  Country: PF (occurrence: FR)
  Receive Date: 20120726
  Receipt Date: 20120904
  Transmission Date: 20130627
  Serious: Yes (Death)
  Sender: FDA-Public Use
  Company Number: PF-BAYER-2012-074841

PATIENT
  Age: 66 Year
  Sex: Male
  Weight: 80 kg

DRUGS (6)
  1. LEVITRA [Suspect]
     Indication: SEXUAL DYSFUNCTION
     Dosage: 10 mg, UNK
     Dates: start: 20120411, end: 20120411
  2. STRUCTUM [Concomitant]
     Indication: OSTEOARTHRITIS
     Dosage: 2 DF, QD
     Route: 048
     Dates: start: 20110923, end: 20120411
  3. PLAVIX [Concomitant]
     Indication: ARTERITIS
     Dosage: 1 DF, QD
     Route: 048
     Dates: start: 20111115, end: 20120411
  4. APROVEL [Concomitant]
     Indication: BLOOD PRESSURE ABNORMAL
     Dosage: 1 DF, QD
     Route: 048
     Dates: start: 20090817, end: 20120411
  5. FRACTAL [Concomitant]
     Indication: HYPERCHOLESTEROLAEMIA
     Dosage: 1 DF, QD
     Route: 048
     Dates: start: 20120321, end: 20120411
  6. ZYLORIC [Concomitant]
     Indication: GOUT
     Dosage: 1 DF, QD
     Route: 048
     Dates: start: 20101218, end: 20120411

REACTIONS (1)
  - Cardiac arrest [Fatal]
